FAERS Safety Report 5941273-3 (Version None)
Quarter: 2008Q4

REPORT INFORMATION
  Report Type: 
  Country: None (occurrence: None)
  Receive Date: 20081103
  Receipt Date: 20081103
  Transmission Date: 20090506
  Serious: Yes (Other)
  Sender: FDA-Public Use
  Company Number: None

PATIENT
  Age: 23 Year
  Sex: Male

DRUGS (4)
  1. RISPERIDONE [Suspect]
     Indication: CEREBRAL PALSY
     Dosage: 1 MG 1 AND 1/2 QHS PO
     Route: 048
     Dates: start: 20080801, end: 20080901
  2. RISPERIDONE [Suspect]
     Indication: MILD MENTAL RETARDATION
     Dosage: 1 MG 1 AND 1/2 QHS PO
     Route: 048
     Dates: start: 20080801, end: 20080901
  3. RISPERIDONE [Suspect]
     Indication: CEREBRAL PALSY
     Dosage: 1 MG 1 AND 1/2 QHS PO
     Route: 048
     Dates: start: 20081001, end: 20081030
  4. RISPERIDONE [Suspect]
     Indication: MILD MENTAL RETARDATION
     Dosage: 1 MG 1 AND 1/2 QHS PO
     Route: 048
     Dates: start: 20081001, end: 20081030

REACTIONS (2)
  - AGGRESSION [None]
  - AGITATION [None]
